FAERS Safety Report 10177794 (Version 1)
Quarter: 2014Q2

REPORT INFORMATION
  Report Type: Spontaneous
  Country: US (occurrence: US)
  Receive Date: 20140516
  Receipt Date: 20140516
  Transmission Date: 20141212
  Serious: No
  Sender: FDA-Public Use
  Company Number: US-SANOFI-AVENTIS-2013SA093754

PATIENT
  Age: 48 Year
  Sex: Female

DRUGS (2)
  1. APIDRA SOLOSTAR [Suspect]
     Indication: TYPE 1 DIABETES MELLITUS
     Dosage: TAKEN FROM- ONE AND HALF WEEKS, DOSE- SLIDING SCALE, FREQUENCY- 3-4 TIMES DAILY
     Route: 058
  2. SOLOSTAR [Concomitant]
     Indication: TYPE 1 DIABETES MELLITUS
     Dosage: TAKEN FROM- ONE AND HALF WEEKS, FREQUENCY- 3-4 TIMES DAILY

REACTIONS (5)
  - Dysgeusia [Not Recovered/Not Resolved]
  - Paraesthesia oral [Unknown]
  - Tongue disorder [Not Recovered/Not Resolved]
  - Dizziness [Not Recovered/Not Resolved]
  - Blood glucose increased [Not Recovered/Not Resolved]
